FAERS Safety Report 10630089 (Version 2)
Quarter: 2014Q4

REPORT INFORMATION
  Report Type: Spontaneous
  Country: US (occurrence: US)
  Receive Date: 20141205
  Receipt Date: 20141205
  Transmission Date: 20150529
  Serious: No
  Sender: FDA-Public Use
  Company Number: US-BRISTOL-MYERS SQUIBB COMPANY-21288899

PATIENT
  Age: 55 Year
  Sex: Male

DRUGS (2)
  1. OXYCODONE [Concomitant]
     Active Substance: OXYCODONE
  2. SPRYCEL [Suspect]
     Active Substance: DASATINIB
     Dosage: DOSE:40MG:13MAR2014
     Route: 048
     Dates: start: 20130813

REACTIONS (3)
  - Malaise [Unknown]
  - Gastric disorder [Unknown]
  - Constipation [Unknown]
